FAERS Safety Report 19303871 (Version 1)
Quarter: 2021Q2

REPORT INFORMATION
  Report Type: Report from Study
  Country: CN (occurrence: CN)
  Receive Date: 20210525
  Receipt Date: 20210525
  Transmission Date: 20210717
  Serious: Yes (Hospitalization)
  Sender: FDA-Public Use
  Company Number: CN-JNJFOC-20191036818

PATIENT
  Age: 23 Year
  Sex: Female
  Weight: 55.8 kg

DRUGS (8)
  1. CYCLOSERINE. [Concomitant]
     Active Substance: CYCLOSERINE
     Indication: DEPRESSION
     Route: 048
     Dates: start: 20191018, end: 20191020
  2. CYCLOSERINE. [Concomitant]
     Active Substance: CYCLOSERINE
     Route: 048
     Dates: start: 20191105, end: 20191106
  3. PLACEBO [Suspect]
     Active Substance: UNSPECIFIED INGREDIENT
     Indication: DEPRESSION
     Dates: start: 20191011
  4. CYCLOSERINE. [Concomitant]
     Active Substance: CYCLOSERINE
     Route: 048
     Dates: start: 20191030, end: 20191104
  5. CYCLOSERINE. [Concomitant]
     Active Substance: CYCLOSERINE
     Route: 048
     Dates: start: 20191107
  6. ESCITALOPRAM [Concomitant]
     Active Substance: ESCITALOPRAM OXALATE
     Route: 048
     Dates: start: 20191018, end: 20191021
  7. ESCITALOPRAM [Concomitant]
     Active Substance: ESCITALOPRAM OXALATE
     Indication: DEPRESSION
     Route: 048
     Dates: start: 20191011, end: 20191017
  8. CYCLOSERINE. [Concomitant]
     Active Substance: CYCLOSERINE
     Route: 048
     Dates: start: 20191021, end: 20191027

REACTIONS (1)
  - Depression [Recovered/Resolved]

NARRATIVE: CASE EVENT DATE: 20191021
